FAERS Safety Report 8430773-2 (Version None)
Quarter: 2012Q2

REPORT INFORMATION
  Report Type: 
  Country: None (occurrence: None)
  Receive Date: 20120612
  Receipt Date: 20120601
  Transmission Date: 20120825
  Serious: Yes (Other)
  Sender: FDA-Public Use
  Company Number: US-RB-040090-12

PATIENT
  Sex: Male

DRUGS (3)
  1. SUBOXONE [Suspect]
     Indication: DRUG DEPENDENCE
     Route: 064
     Dates: start: 20110301, end: 20110801
  2. BUPRENORPHINE [Suspect]
     Indication: DRUG DEPENDENCE
     Route: 064
     Dates: start: 20110801, end: 20111119
  3. METHADONE HCL [Suspect]
     Indication: DRUG DEPENDENCE
     Dosage: UNKNOWN UNIT DOSE
     Route: 064
     Dates: start: 20110801, end: 20110801

REACTIONS (4)
  - EXPOSURE DURING BREAST FEEDING [None]
  - JAUNDICE NEONATAL [None]
  - FOETAL EXPOSURE DURING PREGNANCY [None]
  - PREMATURE BABY [None]
